FAERS Safety Report 4816712-1 (Version None)
Quarter: 2005Q4

REPORT INFORMATION
  Report Type: 
  Country: None (occurrence: None)
  Receive Date: 20051028
  Receipt Date: 20051011
  Transmission Date: 20060501
  Serious: Yes (Death)
  Sender: FDA-Public Use
  Company Number: 2005S1008646

PATIENT
  Age: 73 Year
  Sex: Female

DRUGS (16)
  1. CLOZAPINE [Suspect]
     Indication: HALLUCINATION
     Dosage: 50 MG; BID; PO
     Route: 048
     Dates: start: 20050808, end: 20050916
  2. LITHIUM [Suspect]
     Dosage: 300 MG, BID;PO
     Route: 048
     Dates: start: 20050902, end: 20050911
  3. GLUCOSAMINE HYDROCHLORIDE/CHONDROITIN SULFATE [Concomitant]
  4. FUROSEMIDE [Concomitant]
  5. ENALAPRIL [Concomitant]
  6. DOCUSATE SODIUM/SENNA [Concomitant]
  7. CELECOXIB [Concomitant]
  8. POLYCARBOPHIL CALCIUM [Concomitant]
  9. COLECALCIFEROL/CALCIUM [Concomitant]
  10. TRAMADOL [Concomitant]
  11. ACETAMINOPHEN [Concomitant]
  12. POTASSIUM CHLORIDE [Concomitant]
  13. LANSOPRAZOLE [Concomitant]
  14. MORPHINE [Concomitant]
  15. LITHIUM [Concomitant]
  16. ERGOCALCIFEROL/CALCIUM [Concomitant]

REACTIONS (4)
  - BEDRIDDEN [None]
  - DYSKINESIA [None]
  - GRANULOCYTOPENIA [None]
  - ORAL INTAKE REDUCED [None]
